FAERS Safety Report 9284161 (Version 2)
Quarter: 2014Q1

REPORT INFORMATION
  Report Type: Spontaneous
  Country: US (occurrence: US)
  Receive Date: 20130510
  Receipt Date: 20140312
  Transmission Date: 20141002
  Serious: Yes (Other)
  Sender: FDA-Public Use
  Company Number: CHPA2013US007780

PATIENT
  Age: 75 Year
  Sex: Male

DRUGS (1)
  1. RITEAID PLP [Suspect]
     Indication: SMOKING CESSATION THERAPY
     Dosage: 21 MG, QD
     Route: 062
     Dates: start: 20130425, end: 20130429

REACTIONS (6)
  - Skin ulcer [Recovered/Resolved]
  - Rash pustular [Recovering/Resolving]
  - Scab [Recovering/Resolving]
  - Incorrect dose administered [Unknown]
  - Overdose [Unknown]
  - Wrong technique in drug usage process [Unknown]
